FAERS Safety Report 21762379 (Version 1)
Quarter: 2022Q4

REPORT INFORMATION
  Report Type: Spontaneous
  Country: FR (occurrence: FR)
  Receive Date: 20221221
  Receipt Date: 20221221
  Transmission Date: 20230113
  Serious: Yes (Hospitalization)
  Sender: FDA-Public Use
  Company Number: None

PATIENT
  Age: 16 Year
  Sex: Female

DRUGS (5)
  1. KETOPROFEN [Suspect]
     Active Substance: KETOPROFEN
     Indication: Product used for unknown indication
     Dosage: 40 TABLET OF 100 MG, 1 TOTAL
     Route: 048
     Dates: start: 20220222, end: 20220222
  2. TRAMADOL [Suspect]
     Active Substance: TRAMADOL
     Indication: Product used for unknown indication
     Dosage: 30 TABLET OF 50 MG, 1 TOTAL
     Route: 048
     Dates: start: 20220222, end: 20220222
  3. ACETAMINOPHEN [Suspect]
     Active Substance: ACETAMINOPHEN
     Indication: Product used for unknown indication
     Dosage: 8 TABLET OF 1G, 1 TOTAL
     Route: 048
     Dates: start: 20220222, end: 20220222
  4. ACETAMINOPHEN\CODEINE PHOSPHATE [Suspect]
     Active Substance: ACETAMINOPHEN\CODEINE PHOSPHATE
     Indication: Product used for unknown indication
     Dosage: 16 G PARACETAMOL 32 TABLET OF 500MG/30MG, 1 TOTAL
     Route: 048
     Dates: start: 20220222, end: 20220222
  5. ACETAMINOPHEN\CODEINE PHOSPHATE [Suspect]
     Active Substance: ACETAMINOPHEN\CODEINE PHOSPHATE
     Dosage: 960 MG CODEINE 32 TABLET OF 500MG/30MG, 1 TOTAL
     Route: 048
     Dates: start: 20220222, end: 20220222

REACTIONS (3)
  - Toxicity to various agents [Recovered/Resolved]
  - Hepatic function abnormal [Recovered/Resolved]
  - Vomiting [Recovered/Resolved]

NARRATIVE: CASE EVENT DATE: 20220222
